FAERS Safety Report 9461816 (Version 2)
Quarter: 2013Q3

REPORT INFORMATION
  Report Type: Report from Study
  Country: TW (occurrence: TW)
  Receive Date: 20130816
  Receipt Date: 20130828
  Transmission Date: 20140515
  Serious: Yes (Hospitalization, Other)
  Sender: FDA-Public Use
  Company Number: TW-CELGENEUS-153-21880-11072649

PATIENT
  Age: 82 Year
  Sex: Male
  Weight: 65 kg

DRUGS (18)
  1. REVLIMID [Suspect]
     Indication: PLASMA CELL MYELOMA
     Dosage: 10 MILLIGRAM
     Route: 048
     Dates: start: 20110629, end: 20110719
  2. DIMOTIL REPE [Concomitant]
     Indication: PRODUCT USED FOR UNKNOWN INDICATION
     Dosage: 5/212.5 MG
     Route: 048
     Dates: start: 20110722, end: 20110727
  3. DIMOTIL REPE [Concomitant]
     Dosage: 5/212.5 MG
     Route: 048
     Dates: start: 20110728
  4. DEFENSE [Concomitant]
     Indication: PRODUCT USED FOR UNKNOWN INDICATION
     Dosage: 900 MILLIGRAM
     Route: 048
     Dates: start: 20110722
  5. FLUTAFIN [Concomitant]
     Indication: PRODUCT USED FOR UNKNOWN INDICATION
     Route: 048
     Dates: start: 20110722, end: 20110723
  6. FLUTAFIN [Concomitant]
     Dosage: 800 MILLIGRAM
     Route: 048
     Dates: start: 20110722, end: 20110724
  7. HUMAN ALBUMIN 25% [Concomitant]
     Indication: PRODUCT USED FOR UNKNOWN INDICATION
     Route: 041
     Dates: start: 20110722, end: 20110724
  8. HUMAN ALBUMIN 25% [Concomitant]
     Dosage: 50 MILLILITER
     Route: 041
     Dates: start: 20110723, end: 20110727
  9. FELINAMIN [Concomitant]
     Indication: PRODUCT USED FOR UNKNOWN INDICATION
     Dosage: 10 MILLILITER
     Route: 041
     Dates: start: 20110723, end: 20110727
  10. BROWN MIXT [Concomitant]
     Indication: PRODUCT USED FOR UNKNOWN INDICATION
     Dosage: 15 MILLILITER
     Route: 048
     Dates: start: 20110724, end: 20110725
  11. BROWN MIXT [Concomitant]
     Dosage: 60 MILLILITER
     Route: 048
     Dates: end: 20110728
  12. ATIVAN [Concomitant]
     Indication: PRODUCT USED FOR UNKNOWN INDICATION
     Dosage: 1 TABLET
     Route: 048
     Dates: start: 20110724, end: 20110725
  13. ATIVAN [Concomitant]
     Route: 048
     Dates: end: 20110728
  14. REGROW [Concomitant]
     Indication: PRODUCT USED FOR UNKNOWN INDICATION
     Dosage: 2 TABLET
     Route: 048
     Dates: start: 20110724, end: 20110728
  15. SLOW-K [Concomitant]
     Indication: PRODUCT USED FOR UNKNOWN INDICATION
     Dosage: 1800 MILLIGRAM
     Route: 048
     Dates: start: 20110725, end: 20110728
  16. COFARIN [Concomitant]
     Indication: PRODUCT USED FOR UNKNOWN INDICATION
     Dosage: 1 MILLIGRAM
     Route: 048
     Dates: start: 20110726, end: 20110728
  17. MAXTAM [Concomitant]
     Indication: PRODUCT USED FOR UNKNOWN INDICATION
     Dosage: 1500 MILLIGRAM
     Route: 041
     Dates: start: 20110721, end: 20110721
  18. AMPOLIN [Concomitant]
     Indication: PRODUCT USED FOR UNKNOWN INDICATION
     Dosage: 3000 MILLIGRAM
     Route: 041
     Dates: start: 20110721, end: 20110721

REACTIONS (2)
  - Hyperglycaemia [Recovered/Resolved]
  - Pulmonary embolism [Recovered/Resolved with Sequelae]
